FAERS Safety Report 5104938-1 (Version None)
Quarter: 2006Q3

REPORT INFORMATION
  Report Type: 
  Country: None (occurrence: None)
  Receive Date: 20060908
  Receipt Date: 20060908
  Transmission Date: 20061208
  Serious: Yes (Hospitalization)
  Sender: FDA-Public Use
  Company Number: None

PATIENT
  Sex: Female
  Weight: 90.2658 kg

DRUGS (2)
  1. ADRIAMYCIN PFS [Suspect]
     Indication: BREAST CANCER
     Dosage: 120 MG Q 2 WEEKS IV
     Route: 042
     Dates: start: 20060818
  2. CYTOXAN [Suspect]
     Indication: BREAST CANCER
     Dosage: 1200 MG Q 2 WEEKS IV
     Route: 042
     Dates: start: 20060818

REACTIONS (2)
  - NEUTROPENIA [None]
  - PYREXIA [None]
